FAERS Safety Report 13731459 (Version 1)
Quarter: 2017Q3

REPORT INFORMATION
  Report Type: Spontaneous
  Country: US (occurrence: US)
  Receive Date: 20170707
  Receipt Date: 20170707
  Transmission Date: 20171127
  Serious: Yes (Other)
  Sender: FDA-Public Use
  Company Number: US-009507513-1707USA000200

PATIENT
  Sex: Female

DRUGS (2)
  1. NEXPLANON [Suspect]
     Active Substance: ETONOGESTREL
     Indication: CONTRACEPTION
     Dosage: FOR 3 YEARS
     Route: 059
  2. CLONIDINE. [Concomitant]
     Active Substance: CLONIDINE
     Dosage: UNK

REACTIONS (8)
  - Burns third degree [Unknown]
  - Back pain [Unknown]
  - Headache [Unknown]
  - Premenstrual syndrome [Unknown]
  - Unintended pregnancy [Unknown]
  - Pregnancy with implant contraceptive [Unknown]
  - Abdominal distension [Unknown]
  - Nausea [Unknown]
